FAERS Safety Report 10004142 (Version 2)
Quarter: 2014Q2

REPORT INFORMATION
  Report Type: Spontaneous
  Country: DE (occurrence: DE)
  Receive Date: 20140312
  Receipt Date: 20140416
  Transmission Date: 20141212
  Serious: Yes (Hospitalization)
  Sender: FDA-Public Use
  Company Number: DE-009507513-1403DEU003337

PATIENT
  Age: 15 Year
  Sex: Female
  Weight: 84 kg

DRUGS (3)
  1. REMERGIL [Suspect]
     Indication: DEPRESSION
     Dosage: 7.5 MG, QD
     Route: 048
     Dates: start: 201103
  2. FLUVOXAMINE MALEATE [Suspect]
     Indication: DEPRESSION
     Dosage: 50 MG, QD
     Route: 048
     Dates: start: 201103
  3. ZINC SULFATE [Concomitant]
     Indication: ZINC DEFICIENCY
     Dosage: 20 MG, TID
     Route: 048

REACTIONS (2)
  - Seizure like phenomena [Unknown]
  - Myoclonus [Unknown]
